FAERS Safety Report 5763122-9 (Version None)
Quarter: 2008Q2

REPORT INFORMATION
  Report Type: 
  Country: None (occurrence: None)
  Receive Date: 20080602
  Receipt Date: 20080205
  Transmission Date: 20081010
  Serious: No
  Sender: FDA-Public Use
  Company Number: PHEH2008US01565

PATIENT
  Sex: Female

DRUGS (1)
  1. TEKTURNA [Suspect]
     Dates: start: 20080202

REACTIONS (1)
  - DIZZINESS [None]
